FAERS Safety Report 7686972-0 (Version None)
Quarter: 2011Q3

REPORT INFORMATION
  Report Type: 
  Country: None (occurrence: None)
  Receive Date: 20110816
  Receipt Date: 20110809
  Transmission Date: 20111222
  Serious: Yes (Life-Threatening, Other)
  Sender: FDA-Public Use
  Company Number: US-BAYER-2011-013477

PATIENT
  Sex: Female
  Weight: 89.796 kg

DRUGS (3)
  1. YASMIN [Suspect]
     Indication: PRODUCT USED FOR UNKNOWN INDICATION
     Dosage: UNK
     Dates: start: 20061001
  2. YASMIN [Suspect]
     Indication: PREMENSTRUAL SYNDROME
  3. YAZ [Suspect]
     Indication: PREMENSTRUAL SYNDROME
     Dosage: UNK
     Dates: start: 20040101, end: 20050101

REACTIONS (6)
  - HYSTERECTOMY [None]
  - NEPHROLITHIASIS [None]
  - FEAR [None]
  - PAIN [None]
  - MENORRHAGIA [None]
  - ANXIETY [None]
